FAERS Safety Report 23925167 (Version 1)
Quarter: 2024Q2

REPORT INFORMATION
  Report Type: Spontaneous
  Country: US (occurrence: US)
  Receive Date: 20240531
  Receipt Date: 20240531
  Transmission Date: 20240716
  Serious: No
  Sender: FDA-Public Use
  Company Number: US-GLANDPHARMA-US-2024GLNSPO00265

PATIENT

DRUGS (2)
  1. METOPROLOL TARTRATE [Suspect]
     Active Substance: METOPROLOL TARTRATE
     Indication: Hypertension
     Route: 065
  2. CLONIDINE [Concomitant]
     Active Substance: CLONIDINE
     Route: 065

REACTIONS (8)
  - Anxiety [Unknown]
  - Peripheral swelling [Unknown]
  - Joint swelling [Unknown]
  - Insomnia [Unknown]
  - Dry mouth [Unknown]
  - Visual impairment [Unknown]
  - Middle insomnia [Unknown]
  - Product use in unapproved indication [Unknown]
